FAERS Safety Report 25603345 (Version 1)
Quarter: 2025Q3

REPORT INFORMATION
  Report Type: Spontaneous
  Country: US (occurrence: US)
  Receive Date: 20250724
  Receipt Date: 20250724
  Transmission Date: 20251021
  Serious: No
  Sender: BIOMARIN
  Company Number: US-BIOMARINAP-US-2025-167463

PATIENT
  Sex: Female
  Weight: 81.224 kg

DRUGS (1)
  1. VIMIZIM [Suspect]
     Active Substance: ELOSULFASE ALFA
     Indication: Mucopolysaccharidosis IV
     Dosage: 180 MILLIGRAM, QW
     Dates: start: 202002

REACTIONS (2)
  - Injection site cellulitis [Recovering/Resolving]
  - Poor venous access [Recovered/Resolved]
